FAERS Safety Report 19465441 (Version 1)
Quarter: 2021Q2

REPORT INFORMATION
  Report Type: Spontaneous
  Country: FR (occurrence: FR)
  Receive Date: 20210624
  Receipt Date: 20210624
  Transmission Date: 20210717
  Serious: Yes (Other)
  Sender: FDA-Public Use
  Company Number: FR-DSJP-DSE-2021-118149

PATIENT
  Sex: Female

DRUGS (1)
  1. ENHERTU [Suspect]
     Active Substance: FAM-TRASTUZUMAB DERUXTECAN-NXKI
     Indication: HER2 POSITIVE BREAST CANCER
     Dosage: CYCLIC, (ONCE PER 21 DAY CYCLE)

REACTIONS (4)
  - Asthenia [Recovering/Resolving]
  - Bronchitis [Not Recovered/Not Resolved]
  - Dyspnoea [Recovering/Resolving]
  - Disease progression [Not Recovered/Not Resolved]
